FAERS Safety Report 15468091 (Version 2)
Quarter: 2021Q2

REPORT INFORMATION
  Report Type: Report from Study
  Country: US (occurrence: US)
  Receive Date: 20181005
  Receipt Date: 20210510
  Transmission Date: 20210716
  Serious: No
  Sender: FDA-Public Use
  Company Number: PHEH2018US040416

PATIENT
  Sex: Female

DRUGS (1)
  1. AFINITOR [Suspect]
     Active Substance: EVEROLIMUS
     Indication: PRODUCT USED FOR UNKNOWN INDICATION
     Dosage: UNK
     Route: 065

REACTIONS (4)
  - Seasonal allergy [Unknown]
  - Sinus disorder [Unknown]
  - Illness [Unknown]
  - Rhinorrhoea [Unknown]
